FAERS Safety Report 4395987-X (Version None)
Quarter: 2004Q3

REPORT INFORMATION
  Report Type: 
  Country: None (occurrence: None)
  Receive Date: 20040707
  Receipt Date: 20040628
  Transmission Date: 20050211
  Serious: Yes (Hospitalization)
  Sender: FDA-Public Use
  Company Number: MK200406-0116-2

PATIENT
  Age: 72 Year
  Sex: Male

DRUGS (14)
  1. ANAFRANIL [Suspect]
     Dosage: 50MG DAILY
  2. PAXIL [Suspect]
     Dosage: 20 MG
  3. MAPROTILINE HCL [Suspect]
     Dosage: 50 MG
  4. ALPRAZOLAM [Concomitant]
  5. AZACTAM [Concomitant]
  6. DIAZEPAM [Concomitant]
  7. MEROPENEM [Concomitant]
  8. MIANSERIN [Concomitant]
  9. NITRAZEPAM [Concomitant]
  10. QUAZEPAM [Concomitant]
  11. SULPIRIDE [Concomitant]
  12. THEOPHYLLINE [Concomitant]
  13. TIAPRIDE [Concomitant]
  14. ZOPICLONE [Concomitant]

REACTIONS (21)
  - ABNORMAL BEHAVIOUR [None]
  - ACTIVITIES OF DAILY LIVING IMPAIRED [None]
  - ANOREXIA [None]
  - ANXIETY [None]
  - BED REST [None]
  - DEHYDRATION [None]
  - DELIRIUM [None]
  - DEPRESSED LEVEL OF CONSCIOUSNESS [None]
  - DEPRESSION [None]
  - DISORIENTATION [None]
  - DRUG INEFFECTIVE [None]
  - INAPPROPRIATE ANTIDIURETIC HORMONE SECRETION [None]
  - INSOMNIA [None]
  - MALAISE [None]
  - PNEUMONIA [None]
  - PYREXIA [None]
  - RESPIRATORY DISTRESS [None]
  - SLEEP PHASE RHYTHM DISTURBANCE [None]
  - SPEECH DISORDER [None]
  - SUICIDAL IDEATION [None]
  - WEIGHT DECREASED [None]
